FAERS Safety Report 9204221 (Version 1)
Quarter: 2013Q2

REPORT INFORMATION
  Report Type: Spontaneous
  Country: US (occurrence: None)
  Receive Date: 20130401
  Receipt Date: 20130401
  Transmission Date: 20140414
  Serious: No
  Sender: FDA-Public Use
  Company Number: None

PATIENT
  Age: 86 Year
  Sex: Female
  Weight: 61.24 kg

DRUGS (1)
  1. NEOMYCIN-POLYMICIN-DEXAMETHASONE OPTHALMIC OINTMENT SUBSTITUTED FOR A MAXTILOL EYE OINTMENT MFR: FALCON PHARMACEUTICAL [Suspect]
     Indication: EYE INFECTION
     Dosage: RIBBON OF OINTMENT ON EYELIDS ONCE DAILY
     Dates: start: 20130228, end: 20130307

REACTIONS (5)
  - Eye infection [None]
  - Condition aggravated [None]
  - Pain [None]
  - Eyelid oedema [None]
  - Impaired healing [None]
